FAERS Safety Report 23513561 (Version 2)
Quarter: 2024Q3

REPORT INFORMATION
  Report Type: Spontaneous
  Country: US (occurrence: US)
  Receive Date: 20240212
  Receipt Date: 20240911
  Transmission Date: 20241016
  Serious: No
  Sender: BAYER
  Company Number: US-BAYER-2024A023116

PATIENT
  Age: 37 Year
  Sex: Female
  Weight: 105.22 kg

DRUGS (1)
  1. MIRENA [Suspect]
     Active Substance: LEVONORGESTREL
     Indication: Intrauterine contraception
     Dosage: 20?G/DAY
     Route: 015
     Dates: start: 20190806, end: 20240229

REACTIONS (3)
  - Genital haemorrhage [None]
  - Pelvic pain [None]
  - Urinary tract infection [None]
